FAERS Safety Report 7129742-4 (Version None)
Quarter: 2010Q4

REPORT INFORMATION
  Report Type: 
  Country: None (occurrence: None)
  Receive Date: 20101130
  Receipt Date: 20101119
  Transmission Date: 20110411
  Serious: Yes (Death)
  Sender: FDA-Public Use
  Company Number: FI-PFIZER INC-2010152889

PATIENT
  Age: 54 Year
  Sex: Female

DRUGS (5)
  1. EFFEXOR [Suspect]
     Dosage: 150 MG
     Route: 048
  2. MIRTAZAPINE [Concomitant]
  3. QUETIAPINE FUMARATE [Concomitant]
  4. DIOVAN [Concomitant]
  5. SEREVENT [Concomitant]
     Dosage: 50 UG/DOSE

REACTIONS (1)
  - CARDIAC ARREST [None]
